FAERS Safety Report 25725374 (Version 1)
Quarter: 2025Q3

REPORT INFORMATION
  Report Type: Spontaneous
  Country: US (occurrence: US)
  Receive Date: 20250826
  Receipt Date: 20250826
  Transmission Date: 20251021
  Serious: No
  Sender: Aarkish Pharmaceuticals
  Company Number: US-Aarkish Pharmaceuticals NJ Inc.-2183218

PATIENT

DRUGS (2)
  1. ACETAZOLAMIDE [Suspect]
     Active Substance: ACETAZOLAMIDE
     Indication: Idiopathic intracranial hypertension
  2. ACETAZOLAMIDE [Suspect]
     Active Substance: ACETAZOLAMIDE
     Indication: Papilloedema

REACTIONS (1)
  - Drug ineffective for unapproved indication [Unknown]
